FAERS Safety Report 10732729 (Version 3)
Quarter: 2015Q1

REPORT INFORMATION
  Report Type: Report from Study
  Country: JP (occurrence: None)
  Receive Date: 20150120
  Receipt Date: 20150206
  Transmission Date: 20150721
  Serious: Yes (Hospitalization)
  Sender: FDA-Public Use
  Company Number: 2015FE00047

PATIENT
  Age: 80 Year
  Sex: Male

DRUGS (14)
  1. DIOVAN (VALSARTAN)??? [Concomitant]
  2. BAYASPIRIN (ACETYLSALICYLIC ACID) (ACETYLSALICYLIC ACID) [Concomitant]
     Active Substance: ASPIRIN
  3. MAGNESIUM OXIDE (MAGNESIUM OXIDE) [Concomitant]
     Active Substance: MAGNESIUM OXIDE
  4. OMEPRAZOLE (OMEPRAZOLE) [Concomitant]
     Active Substance: OMEPRAZOLE
  5. EQUA (VILDAGILIPTIN) [Concomitant]
     Indication: DIABETES MELLITUS
     Dates: end: 2014
  6. AMARYL [Concomitant]
     Active Substance: GLIMEPIRIDE
     Indication: DIABETES MELLITUS
  7. METHYCOBAL (MECOBALAMIN) [Concomitant]
  8. DEGARELIX [Suspect]
     Active Substance: DEGARELIX
     Route: 058
     Dates: start: 20131015, end: 20131015
  9. CEROCRAL (IFENPRODIL TARTRATE) [Concomitant]
  10. MEDICO (DEXTROMETHORPHAN HYDROBROMIDE) [Concomitant]
  11. PLETAAL (CILOSTAZOL) [Concomitant]
  12. METGLUCO [Concomitant]
     Active Substance: METFORMIN HYDROCHLORIDE
     Indication: DIABETES MELLITUS
     Route: 048
     Dates: end: 20150105
  13. SIPSERON (METOPROLOL TARTRATE)??? [Concomitant]
  14. CALONAL (PARACETAMOL) [Concomitant]

REACTIONS (6)
  - Altered state of consciousness [None]
  - Micturition urgency [None]
  - Pneumonia [None]
  - Asthma [None]
  - Dysuria [None]
  - Hypoglycaemia [None]

NARRATIVE: CASE EVENT DATE: 20150101
